FAERS Safety Report 4866735-1 (Version None)
Quarter: 2005Q4

REPORT INFORMATION
  Report Type: 
  Country: None (occurrence: None)
  Receive Date: 20051227
  Receipt Date: 20051206
  Transmission Date: 20060501
  Serious: Yes (Hospitalization)
  Sender: FDA-Public Use
  Company Number: US-KINGPHARMUSA00001-K200501594

PATIENT
  Age: 35 Year
  Sex: Male
  Weight: 82 kg

DRUGS (2)
  1. PRALIDOXIME CHLORIDE AUTO-INJECTOR [Suspect]
     Dosage: 300MG PRALIDO/2ML ATROPI, SINGLE
     Route: 030
     Dates: start: 20051205, end: 20051205
  2. PRALIDOXIME CHLORIDE AUTO-INJECTOR [Suspect]
     Dosage: 300MG PRALIDO/2ML ATROPI, SINGLE
     Route: 030

REACTIONS (8)
  - ACCIDENTAL EXPOSURE [None]
  - HYPERHIDROSIS [None]
  - MEDICAL DEVICE COMPLICATION [None]
  - MOVEMENT DISORDER [None]
  - OEDEMA PERIPHERAL [None]
  - PALLOR [None]
  - PHARMACEUTICAL PRODUCT COMPLAINT [None]
  - SHOCK [None]
